FAERS Safety Report 11399853 (Version 1)
Quarter: 2015Q3

REPORT INFORMATION
  Report Type: Spontaneous
  Country: ES (occurrence: ES)
  Receive Date: 20150820
  Receipt Date: 20150820
  Transmission Date: 20151125
  Serious: Yes (Hospitalization)
  Sender: FDA-Public Use
  Company Number: ES-TEVA-586800ISR

PATIENT
  Age: 69 Year
  Sex: Female

DRUGS (5)
  1. QUETIAPINA [Suspect]
     Active Substance: QUETIAPINE
     Indication: DEPRESSION
     Dosage: 50 MILLIGRAM DAILY;
  2. SERTRALINE [Suspect]
     Active Substance: SERTRALINE HYDROCHLORIDE
     Indication: DEPRESSION
  3. FENITOINA (PHENYTOIN) [Concomitant]
     Indication: PRODUCT USED FOR UNKNOWN INDICATION
     Dosage: 1000 MILLIGRAM DAILY;
  4. SERTRALINE [Suspect]
     Active Substance: SERTRALINE HYDROCHLORIDE
     Dosage: 100 MILLIGRAM DAILY;
  5. QUETIAPINA [Suspect]
     Active Substance: QUETIAPINE
     Dosage: 100 MILLIGRAM DAILY;

REACTIONS (7)
  - Drug ineffective [Recovered/Resolved]
  - Delirium [Recovered/Resolved]
  - Depression [Recovered/Resolved]
  - Body mass index decreased [Unknown]
  - Hallucination, auditory [Recovered/Resolved]
  - Depressive delusion [Recovered/Resolved]
  - Decreased appetite [Recovered/Resolved]
